FAERS Safety Report 6225697-5 (Version None)
Quarter: 2009Q2

REPORT INFORMATION
  Report Type: 
  Country: None (occurrence: None)
  Receive Date: 20090612
  Receipt Date: 20090429
  Transmission Date: 20091009
  Serious: No
  Sender: FDA-Public Use
  Company Number: US-ABBOTT-09P-163-0570773-00

PATIENT
  Sex: Female
  Weight: 85.806 kg

DRUGS (3)
  1. HUMIRA [Suspect]
     Indication: CROHN'S DISEASE
     Route: 058
     Dates: start: 20070101, end: 20080701
  2. HUMIRA [Suspect]
     Route: 058
     Dates: start: 20080901
  3. SYNTHROID [Concomitant]
     Indication: HYPOTHYROIDISM

REACTIONS (3)
  - CONTUSION [None]
  - CROHN'S DISEASE [None]
  - URTICARIA [None]
